FAERS Safety Report 6168869-0 (Version None)
Quarter: 2009Q2

REPORT INFORMATION
  Report Type: 
  Country: None (occurrence: None)
  Receive Date: 20090413
  Receipt Date: 20090413
  Transmission Date: 20091009
  Serious: No
  Sender: FDA-Public Use
  Company Number: None

PATIENT
  Sex: Female
  Weight: 89.3586 kg

DRUGS (1)
  1. BARIUM SULFATE [Suspect]

REACTIONS (4)
  - DRUG HYPERSENSITIVITY [None]
  - PARAESTHESIA ORAL [None]
  - PRURITUS [None]
  - STOMATITIS [None]
